FAERS Safety Report 17032439 (Version 2)
Quarter: 2019Q4

REPORT INFORMATION
  Report Type: Spontaneous
  Country: US (occurrence: US)
  Receive Date: 20191114
  Receipt Date: 20191114
  Transmission Date: 20200122
  Serious: Yes (Hospitalization, Other)
  Sender: FDA-Public Use
  Company Number: US-SHIRE-US201937958

PATIENT
  Age: 48 Year
  Sex: Female

DRUGS (2)
  1. FIRAZYR [Suspect]
     Active Substance: ICATIBANT ACETATE
     Indication: IMMUNE SYSTEM DISORDER
     Dosage: 3 DOSAGE FORM (3 SYRINGES)
     Route: 058
     Dates: start: 20150723
  2. TAKHZYRO [Suspect]
     Active Substance: LANADELUMAB-FLYO
     Indication: IMMUNE SYSTEM DISORDER
     Dosage: 1 DOSAGE FORM (1 VIAL), 1X/2WKS
     Route: 065

REACTIONS (2)
  - Hereditary angioedema [Unknown]
  - Obstruction gastric [Unknown]

NARRATIVE: CASE EVENT DATE: 20191031
